FAERS Safety Report 22598388 (Version 4)
Quarter: 2024Q1

REPORT INFORMATION
  Report Type: Spontaneous
  Country: AT (occurrence: AT)
  Receive Date: 20230614
  Receipt Date: 20240111
  Transmission Date: 20240410
  Serious: Yes (Other)
  Sender: FDA-Public Use
  Company Number: None

PATIENT
  Age: 68 Year
  Sex: Female
  Weight: 49 kg

DRUGS (33)
  1. DEXAMETHASONE [Suspect]
     Active Substance: DEXAMETHASONE
     Indication: Product used for unknown indication
     Dosage: UNK
     Route: 065
     Dates: start: 20220225, end: 20220928
  2. PANTOPRAZOLE [Concomitant]
     Active Substance: PANTOPRAZOLE
     Indication: Product used for unknown indication
     Dosage: UNK
     Route: 065
  3. Kalioral [Concomitant]
     Indication: Product used for unknown indication
     Route: 065
  4. CANDAM [Concomitant]
     Indication: Product used for unknown indication
     Dosage: (CANDESARTAN CILEXETIL 8 MG, AMLODIPINE 5 MG, -})
  5. POSACONAZOLE [Concomitant]
     Active Substance: POSACONAZOLE
     Indication: Product used for unknown indication
     Dosage: 100 MG
     Route: 065
  6. SULFAMETHOXAZOLE\TRIMETHOPRIM [Concomitant]
     Active Substance: SULFAMETHOXAZOLE\TRIMETHOPRIM
     Indication: Product used for unknown indication
     Dosage: (TRIMETHOPRIM 80 MG, SULFAMETHOXAZOLE 400 MG)
     Route: 065
  7. SULFAMETHOXAZOLE\TRIMETHOPRIM [Concomitant]
     Active Substance: SULFAMETHOXAZOLE\TRIMETHOPRIM
     Indication: Product used for unknown indication
     Dosage: UNK (TRIMETHOPRIM 80 MG, SULFAMETHOXAZOLE 400 MG)
     Route: 065
  8. SULFAMETHOXAZOLE\TRIMETHOPRIM [Concomitant]
     Active Substance: SULFAMETHOXAZOLE\TRIMETHOPRIM
     Indication: Product used for unknown indication
     Dosage: 480 MG (TRIMETHOPRIM 80 MG, SULFAMETHOXAZOLE 400 MG)
     Route: 065
  9. ASCORBIC ACID\CALCIUM PHOSPHATE\CHOLECALCIFEROL\CITRIC ACID MONOHYDRAT [Concomitant]
     Active Substance: ASCORBIC ACID\CALCIUM PHOSPHATE\CHOLECALCIFEROL\CITRIC ACID MONOHYDRATE
     Indication: Product used for unknown indication
     Dosage: (CALCIUM CARBONATE, CHOLECALCIFEROL 800 IU, -})
  10. CARBOPLATIN [Suspect]
     Active Substance: CARBOPLATIN
     Indication: Burkitt^s lymphoma
     Dosage: UNK (AUS 5 D2)
     Route: 065
  11. POLIVY [Suspect]
     Active Substance: POLATUZUMAB VEDOTIN-PIIQ
     Indication: Product used for unknown indication
     Dosage: 1.8 MG/KG D1
     Route: 065
     Dates: start: 20221124, end: 20221204
  12. IFOSFAMIDE [Suspect]
     Active Substance: IFOSFAMIDE
     Indication: Product used for unknown indication
     Dosage: UNK
     Route: 065
     Dates: start: 20220225, end: 20220928
  13. CYTARABINE [Suspect]
     Active Substance: CYTARABINE
     Indication: Burkitt^s lymphoma
     Dosage: UNK
     Route: 065
     Dates: start: 20220225, end: 20220928
  14. ETOPOSIDE [Suspect]
     Active Substance: ETOPOSIDE
     Indication: Burkitt^s lymphoma
     Dosage: 100 UNK (100 MG/M2 D1-3)
     Route: 042
     Dates: start: 20220225, end: 20220928
  15. ETOPOSIDE [Suspect]
     Active Substance: ETOPOSIDE
     Indication: Burkitt^s lymphoma
     Dosage: 100 UNK (100 MG/M2 D1-3)
     Route: 042
  16. METHOTREXATE [Suspect]
     Active Substance: METHOTREXATE
     Indication: Burkitt^s lymphoma
     Dosage: UNK
     Route: 037
     Dates: start: 20220225, end: 20220928
  17. CYCLOPHOSPHAMIDE [Suspect]
     Active Substance: CYCLOPHOSPHAMIDE
     Indication: Burkitt^s lymphoma
     Dosage: UNK
     Route: 065
     Dates: start: 20220225, end: 20220928
  18. RITUXIMAB [Suspect]
     Active Substance: RITUXIMAB
     Indication: Burkitt^s lymphoma
     Dosage: UNK
     Route: 065
     Dates: start: 20220225, end: 20220928
  19. PREDNISONE [Suspect]
     Active Substance: PREDNISONE
     Indication: Product used for unknown indication
     Dosage: UNK
     Route: 065
     Dates: start: 20220225, end: 20220928
  20. FILGRASTIM [Concomitant]
     Active Substance: FILGRASTIM
     Indication: Product used for unknown indication
     Dosage: UNK (30,000,000 IU)
     Route: 065
  21. URSODIOL [Concomitant]
     Active Substance: URSODIOL
     Indication: Product used for unknown indication
     Dosage: 250 MG
     Route: 065
  22. ENTOCORT [Concomitant]
     Active Substance: BUDESONIDE
     Indication: Product used for unknown indication
     Dosage: 3 MG (BUDESONIDE 3 MG)
     Route: 065
  23. ENTOCORT [Concomitant]
     Active Substance: BUDESONIDE
     Indication: Product used for unknown indication
     Dosage: (BUDESONIDE 3 MG, -})
  24. PANTOPRAZOLE SODIUM [Concomitant]
     Active Substance: PANTOPRAZOLE SODIUM
     Indication: Product used for unknown indication
     Dosage: UNK (PANTOPRAZOLE 40 MG, -})
     Route: 065
  25. PANTOPRAZOLE SODIUM [Concomitant]
     Active Substance: PANTOPRAZOLE SODIUM
     Indication: Product used for unknown indication
     Dosage: 40 MG
     Route: 065
  26. ALLOPURINOL [Concomitant]
     Active Substance: ALLOPURINOL
     Indication: Product used for unknown indication
     Dosage: 300 MG
     Route: 065
  27. VALACYCLOVIR HYDROCHLORIDE [Concomitant]
     Active Substance: VALACYCLOVIR HYDROCHLORIDE
     Indication: Product used for unknown indication
     Dosage: (VALACICLOVIR 500 MG, TITANIUM DIOXIDE HYPROMELLOSE)
     Route: 065
  28. VALACYCLOVIR HYDROCHLORIDE [Concomitant]
     Active Substance: VALACYCLOVIR HYDROCHLORIDE
     Indication: Product used for unknown indication
     Dosage: 500 MG (VALACICLOVIR 500 MG, TITANIUM DIOXIDE HYPROMELLOSE)
     Route: 065
  29. VALACYCLOVIR HYDROCHLORIDE [Concomitant]
     Active Substance: VALACYCLOVIR HYDROCHLORIDE
     Indication: Product used for unknown indication
     Dosage: (VALACICLOVIR 500 MG, TITANIUM DIOXIDE HYPROMELLOSE)
     Route: 065
  30. LEVOFLOXACIN [Concomitant]
     Active Substance: LEVOFLOXACIN
     Indication: Product used for unknown indication
     Dosage: 500 MG
     Route: 065
  31. IFOSFAMIDE [Suspect]
     Active Substance: IFOSFAMIDE
     Indication: Product used for unknown indication
     Dosage: 5,000 MG/M2 D2; 2 CYCLES 9.11.23- 5.12.23
     Route: 065
     Dates: start: 20220225, end: 20220928
  32. IFOSFAMIDE [Suspect]
     Active Substance: IFOSFAMIDE
     Indication: Product used for unknown indication
     Dosage: 5,000 MG/M2 D2; 2 CYCLES  9.11.23- 5.12.23
     Route: 065
  33. ATORVADIVID [Concomitant]
     Indication: Product used for unknown indication

REACTIONS (4)
  - Disease progression [Unknown]
  - Enteritis [Unknown]
  - Blood lactate dehydrogenase increased [Unknown]
  - Off label use [Unknown]

NARRATIVE: CASE EVENT DATE: 20221031
